FAERS Safety Report 15346661 (Version 4)
Quarter: 2018Q3

REPORT INFORMATION
  Report Type: Report from Study
  Country: AU (occurrence: AU)
  Receive Date: 20180904
  Receipt Date: 20180928
  Transmission Date: 20181010
  Serious: Yes (Life-Threatening)
  Sender: FDA-Public Use
  Company Number: AU-ROCHE-2179649

PATIENT
  Sex: Female

DRUGS (1)
  1. OMALIZUMAB. [Suspect]
     Active Substance: OMALIZUMAB
     Indication: CHRONIC SPONTANEOUS URTICARIA
     Dosage: 2?3 MONTH?450 (300 MG PLUS 150 MG)
     Route: 065
     Dates: start: 20180830

REACTIONS (4)
  - Drug effect incomplete [Unknown]
  - Urticaria [Unknown]
  - Off label use [Unknown]
  - Incorrect dose administered [Unknown]
